FAERS Safety Report 18407332 (Version 2)
Quarter: 2021Q3

REPORT INFORMATION
  Report Type: Spontaneous
  Country: US (occurrence: US)
  Receive Date: 20201021
  Receipt Date: 20210820
  Transmission Date: 20211014
  Serious: Yes (Hospitalization)
  Sender: FDA-Public Use
  Company Number: US-ROCHE-2697765

PATIENT
  Age: 4 Year
  Sex: Male

DRUGS (2)
  1. HEMLIBRA [Suspect]
     Active Substance: EMICIZUMAB-KXWH
     Dosage: 30 MG/ML
     Route: 058
     Dates: start: 20200914
  2. HEMLIBRA [Suspect]
     Active Substance: EMICIZUMAB-KXWH
     Indication: FACTOR VIII DEFICIENCY
     Dosage: 30 MG/ML
     Route: 058
     Dates: start: 20200914

REACTIONS (3)
  - Haemorrhage [Unknown]
  - Haematoma [Unknown]
  - Head injury [Unknown]

NARRATIVE: CASE EVENT DATE: 20210805
